FAERS Safety Report 4442192-4 (Version None)
Quarter: 2004Q3

REPORT INFORMATION
  Report Type: 
  Country: None (occurrence: None)
  Receive Date: 20040903
  Receipt Date: 20040727
  Transmission Date: 20050211
  Serious: Yes (Other)
  Sender: FDA-Public Use
  Company Number: 2004UW15780

PATIENT
  Age: 68 Year
  Sex: Male
  Weight: 104.3273 kg

DRUGS (11)
  1. CRESTOR [Suspect]
     Indication: BLOOD TRIGLYCERIDES INCREASED
     Dates: start: 20040607
  2. GLIPIZIDE [Concomitant]
  3. METOPROLOL [Concomitant]
  4. COZAAR [Concomitant]
  5. TRIAMTERENE AND HYDROCHLOROTHIAZID [Concomitant]
  6. ASPIRIN [Concomitant]
  7. VITAMIN C [Concomitant]
  8. NORVASC [Concomitant]
  9. CLONIDINE HCL [Concomitant]
  10. NIASPAN [Concomitant]
  11. ZETIA [Concomitant]

REACTIONS (1)
  - FAECES HARD [None]
